FAERS Safety Report 7305972-3 (Version None)
Quarter: 2011Q1

REPORT INFORMATION
  Report Type: 
  Country: None (occurrence: None)
  Receive Date: 20110222
  Receipt Date: 20110214
  Transmission Date: 20110831
  Serious: Yes (Other)
  Sender: FDA-Public Use
  Company Number: US-TEVA-267164USA

PATIENT
  Age: 43 Year
  Sex: Female

DRUGS (4)
  1. ASPIRIN [Suspect]
  2. COPAXONE [Suspect]
     Indication: MULTIPLE SCLEROSIS
     Route: 058
  3. INTERFERON BETA NOS [Suspect]
  4. NATALIZUMAB [Suspect]

REACTIONS (5)
  - SUICIDAL IDEATION [None]
  - MULTIPLE SCLEROSIS RELAPSE [None]
  - DEPRESSED MOOD [None]
  - FALL [None]
  - DRUG INEFFECTIVE [None]
